FAERS Safety Report 5986392-0 (Version None)
Quarter: 2008Q4

REPORT INFORMATION
  Report Type: 
  Country: None (occurrence: None)
  Receive Date: 20081209
  Receipt Date: 20081204
  Transmission Date: 20090506
  Serious: Yes (Death, Hospitalization)
  Sender: FDA-Public Use
  Company Number: US-BAYER-200838752NA

PATIENT
  Age: 54 Year
  Sex: Male
  Weight: 88 kg

DRUGS (21)
  1. SORAFENIB [Suspect]
     Indication: RENAL CELL CARCINOMA
     Dosage: TOTAL DAILY DOSE: 400 MG  UNIT DOSE: 200 MG
     Route: 048
     Dates: start: 20080605, end: 20081113
  2. RAD 001 [Suspect]
     Indication: RENAL CELL CARCINOMA
     Route: 048
     Dates: start: 20080605, end: 20081113
  3. COUMADIN [Concomitant]
     Dosage: TOTAL DAILY DOSE: 10 MG
  4. MORPHINE [Concomitant]
     Dosage: TOTAL DAILY DOSE: 4 MG
  5. METOPROLOL TARTRATE [Concomitant]
     Dosage: TOTAL DAILY DOSE: 50 MG
  6. LORTAB [Concomitant]
  7. NEXIUM [Concomitant]
  8. AMOXICILLIN [Concomitant]
     Dosage: TOTAL DAILY DOSE: 1000 MG
  9. TYLENOL (CAPLET) [Concomitant]
  10. ALBUTEROL [Concomitant]
  11. DULCOLAX [Concomitant]
  12. CEFAZOLIN [Concomitant]
     Dosage: TOTAL DAILY DOSE: 3 G
  13. ZOFRAN [Concomitant]
  14. NICARDIPINE HYDROCHLORIDE [Concomitant]
  15. PEPCID [Concomitant]
     Dosage: TOTAL DAILY DOSE: 40 MG
  16. ATROVENT [Concomitant]
     Dosage: TOTAL DAILY DOSE: 68 ?G
  17. LABETALOL HCL [Concomitant]
  18. MIDAZOLAM HCL [Concomitant]
  19. POTASSIUM PHOSPHATES [Concomitant]
     Dosage: TOTAL DAILY DOSE: 500 MG
  20. SODIUM CHLORIDE [Concomitant]
     Route: 042
  21. POTASSIUM CHLORIDE [Concomitant]
     Route: 042

REACTIONS (2)
  - DEEP VEIN THROMBOSIS [None]
  - HAEMORRHAGE INTRACRANIAL [None]
